FAERS Safety Report 23855791 (Version 1)
Quarter: 2024Q2

REPORT INFORMATION
  Report Type: Spontaneous
  Country: US (occurrence: US)
  Receive Date: 20240514
  Receipt Date: 20240514
  Transmission Date: 20240716
  Serious: No
  Sender: FDA-Public Use
  Company Number: US-Harrow Eye-2156970

PATIENT
  Age: 9 Year
  Sex: Male

DRUGS (2)
  1. VERKAZIA [Suspect]
     Active Substance: CYCLOSPORINE
     Indication: Eye irritation
  2. VERKAZIA [Suspect]
     Active Substance: CYCLOSPORINE
     Indication: Hypersensitivity

REACTIONS (1)
  - Off label use [Unknown]
